FAERS Safety Report 6091014-7 (Version None)
Quarter: 2009Q1

REPORT INFORMATION
  Report Type: 
  Country: None (occurrence: None)
  Receive Date: 20090225
  Receipt Date: 20090213
  Transmission Date: 20090719
  Serious: Yes (Disabling)
  Sender: FDA-Public Use
  Company Number: US-WYE-H08190109

PATIENT
  Age: 82 Year
  Sex: Female
  Weight: 54.03 kg

DRUGS (1)
  1. PRISTIQ [Suspect]
     Indication: DEPRESSION
     Route: 048
     Dates: start: 20080715, end: 20080722

REACTIONS (3)
  - AMNESIA [None]
  - APHASIA [None]
  - COGNITIVE DISORDER [None]
